FAERS Safety Report 22722351 (Version 5)
Quarter: 2023Q4

REPORT INFORMATION
  Report Type: Spontaneous
  Country: US (occurrence: US)
  Receive Date: 20230719
  Receipt Date: 20231213
  Transmission Date: 20240109
  Serious: Yes (Other)
  Sender: FDA-Public Use
  Company Number: US-SA-SAC20230718001156

PATIENT
  Age: 56 Year
  Sex: Female

DRUGS (1)
  1. DUPIXENT [Suspect]
     Active Substance: DUPILUMAB
     Indication: Asthma
     Dosage: 300 MG, QOW
     Route: 058
     Dates: start: 20230711

REACTIONS (14)
  - Neuropathy peripheral [Unknown]
  - Burning sensation [Recovering/Resolving]
  - Cough [Recovering/Resolving]
  - Wheezing [Recovering/Resolving]
  - Rectal prolapse [Unknown]
  - Hypoaesthesia [Recovering/Resolving]
  - Dyspnoea [Recovering/Resolving]
  - Therapeutic response shortened [Recovering/Resolving]
  - Asthma [Unknown]
  - Productive cough [Unknown]
  - Condition aggravated [Unknown]
  - Fall [Unknown]
  - Visual impairment [Unknown]
  - Pruritus [Recovering/Resolving]

NARRATIVE: CASE EVENT DATE: 20230101
